FAERS Safety Report 5273986-3 (Version None)
Quarter: 2007Q1

REPORT INFORMATION
  Report Type: 
  Country: None (occurrence: None)
  Receive Date: 20070323
  Receipt Date: 20070316
  Transmission Date: 20070707
  Serious: Yes (Other)
  Sender: FDA-Public Use
  Company Number: CH-GLAXOSMITHKLINE-B0452431A

PATIENT
  Age: 61 Year
  Sex: Male
  Weight: 75 kg

DRUGS (2)
  1. AVODART [Suspect]
     Indication: BENIGN PROSTATIC HYPERPLASIA
     Dosage: .5MG PER DAY
     Route: 048
     Dates: start: 20041101, end: 20070108
  2. PRADIF [Concomitant]
     Indication: BENIGN PROSTATIC HYPERPLASIA
     Dosage: 400UG PER DAY
     Route: 048
     Dates: start: 20010101

REACTIONS (5)
  - BENIGN PROSTATIC HYPERPLASIA [None]
  - CHOLESTEROSIS [None]
  - GAMMA-GLUTAMYLTRANSFERASE INCREASED [None]
  - HEPATIC STEATOSIS [None]
  - RENAL CYST [None]
